FAERS Safety Report 17751902 (Version 1)
Quarter: 2020Q2

REPORT INFORMATION
  Report Type: Spontaneous
  Country: AR (occurrence: AR)
  Receive Date: 20200506
  Receipt Date: 20200506
  Transmission Date: 20200714
  Serious: Yes (Other)
  Sender: FDA-Public Use
  Company Number: AR-PFIZER INC-2020180742

PATIENT
  Age: 63 Year
  Sex: Female

DRUGS (1)
  1. GENOTROPIN [Suspect]
     Active Substance: SOMATROPIN
     Indication: HYPOPITUITARISM
     Dosage: 0.1 MG TO 0.5 MG, 7 TIMES PER WEEK
     Dates: start: 20170318

REACTIONS (6)
  - Off label use [Unknown]
  - Product use in unapproved indication [Unknown]
  - Immunosuppression [Unknown]
  - Neoplasm [Not Recovered/Not Resolved]
  - Obesity [Unknown]
  - Visual impairment [Unknown]

NARRATIVE: CASE EVENT DATE: 20170318
